FAERS Safety Report 8599622-6 (Version None)
Quarter: 2012Q3

REPORT INFORMATION
  Report Type: 
  Country: None (occurrence: None)
  Receive Date: 20120816
  Receipt Date: 20120806
  Transmission Date: 20120928
  Serious: Yes (Hospitalization)
  Sender: FDA-Public Use
  Company Number: JP-FRI-1000027465

PATIENT
  Sex: Female

DRUGS (19)
  1. CONIEL [Concomitant]
     Dosage: 1 DF (AFTER MEAL)
  2. CANDESARTAN CILEXETIL [Concomitant]
     Dosage: 1 DF
  3. MAGNESIUM [Concomitant]
  4. LAC-B [Concomitant]
  5. RETICOLAN [Concomitant]
     Dosage: 3 DF
  6. MEMANTINE HCL [Suspect]
     Dosage: 10 MG
     Route: 048
  7. OHNES [Concomitant]
     Dosage: 3 DF
  8. NITOGIS [Concomitant]
  9. MEMANTINE HCL [Suspect]
     Dosage: 15 MG
     Route: 048
     Dates: end: 20110607
  10. MEMANTINE HCL [Suspect]
     Dosage: 20 MG
     Route: 048
     Dates: start: 20110608, end: 20120101
  11. GASUISAN [Concomitant]
     Dosage: 1 DF (MORNING)
  12. RASANEN [Concomitant]
     Dosage: 3 DF
  13. MEMANTINE HCL [Suspect]
     Indication: DEMENTIA ALZHEIMER'S TYPE
     Dosage: 5 MG
     Route: 048
  14. CONIEL [Concomitant]
     Dosage: 0.5 DF (MORNING)
  15. ARICEPT [Concomitant]
     Dosage: 5 MG
  16. GASUISAN [Concomitant]
     Dosage: 1 DF (AFTER A MEAL)
  17. FUROSEMIDE [Concomitant]
     Dosage: 0.5 DF
  18. NICHISTATE [Concomitant]
     Dosage: 3 DF
  19. SIPSERON [Concomitant]
     Dosage: 1.5 DF

REACTIONS (2)
  - HYPERCREATINAEMIA [None]
  - RHABDOMYOLYSIS [None]
